FAERS Safety Report 7424279-7 (Version None)
Quarter: 2011Q2

REPORT INFORMATION
  Report Type: 
  Country: None (occurrence: None)
  Receive Date: 20110411
  Receipt Date: 20110323
  Transmission Date: 20111010
  Serious: Yes (Other)
  Sender: FDA-Public Use
  Company Number: 2011-00375

PATIENT
  Age: 53 Year
  Sex: Female

DRUGS (1)
  1. LISINOPRIL [Suspect]
     Indication: HYPERTENSION
     Dosage: 5 MG (5 MG,1 IN 1 D)
     Dates: start: 20110218

REACTIONS (12)
  - JOINT SWELLING [None]
  - NECK PAIN [None]
  - BACK PAIN [None]
  - MUSCULOSKELETAL PAIN [None]
  - MYALGIA [None]
  - PANIC ATTACK [None]
  - ANGER [None]
  - PAIN [None]
  - DRY THROAT [None]
  - COUGH [None]
  - DYSPHAGIA [None]
  - FEAR [None]
